FAERS Safety Report 8381369-2 (Version None)
Quarter: 2012Q2

REPORT INFORMATION
  Report Type: 
  Country: None (occurrence: None)
  Receive Date: 20120523
  Receipt Date: 20120510
  Transmission Date: 20120825
  Serious: Yes (Hospitalization, Other)
  Sender: FDA-Public Use
  Company Number: CH-ELI_LILLY_AND_COMPANY-CH201205004435

PATIENT
  Age: 72 Year
  Sex: Female

DRUGS (10)
  1. ZOLPIDEM [Concomitant]
     Indication: INSOMNIA
     Dosage: 10 MG, QD
     Route: 048
     Dates: start: 20020101, end: 20120405
  2. CORDARONE [Concomitant]
     Indication: CARDIAC FIBRILLATION
     Dosage: 100 MG, QD
     Route: 048
  3. EUTHYROX [Concomitant]
     Indication: HYPOTHYROIDISM
     Dosage: 0.075 MG, QD
     Route: 048
  4. NITROGLYCERIN [Concomitant]
     Indication: ANGINA PECTORIS
     Dosage: 0.8 MG, UNK
     Route: 048
  5. ACETAMINOPHEN [Concomitant]
     Indication: PAIN
     Dosage: 1000 MG, UNK
  6. ZYPREXA [Suspect]
     Indication: VIOLENCE-RELATED SYMPTOM
     Dosage: 2.5 MG, QD
     Route: 048
     Dates: start: 20020101, end: 20120405
  7. ESCITALOPRAM [Concomitant]
     Indication: DEPRESSION
     Dosage: 10 MG, QD
     Dates: start: 20020101, end: 20120405
  8. ESCITALOPRAM [Concomitant]
     Dosage: 10 MG, QD
     Dates: start: 20120411
  9. SINTROM [Concomitant]
     Indication: CARDIAC FIBRILLATION
     Route: 048
  10. TENORMIN [Concomitant]
     Indication: HYPERTENSION
     Dosage: 25 MG, QD
     Route: 048

REACTIONS (22)
  - DELIRIUM [None]
  - ENCEPHALOPATHY [None]
  - CONFUSIONAL STATE [None]
  - AORTIC ANEURYSM [None]
  - OVERDOSE [None]
  - TARDIVE DYSKINESIA [None]
  - HYPERNATRAEMIA [None]
  - OFF LABEL USE [None]
  - EXTRAPYRAMIDAL DISORDER [None]
  - TREMOR [None]
  - BLOOD CREATINE PHOSPHOKINASE INCREASED [None]
  - SOMNOLENCE [None]
  - DEHYDRATION [None]
  - MEMORY IMPAIRMENT [None]
  - HYPERKINESIA [None]
  - HYPERCALCAEMIA [None]
  - RENAL FAILURE ACUTE [None]
  - URINARY TRACT INFECTION [None]
  - DISTURBANCE IN ATTENTION [None]
  - INCOHERENT [None]
  - PNEUMONIA [None]
  - FALL [None]
